FAERS Safety Report 24965676 (Version 2)
Quarter: 2025Q1

REPORT INFORMATION
  Report Type: Spontaneous
  Country: IT (occurrence: IT)
  Receive Date: 20250213
  Receipt Date: 20250307
  Transmission Date: 20250408
  Serious: Yes (Death, Other)
  Sender: LEO PHARM
  Company Number: IT-LEO Pharma-377577

PATIENT
  Age: 87 Year
  Sex: Male

DRUGS (2)
  1. ADBRY [Suspect]
     Active Substance: TRALOKINUMAB-LDRM
     Indication: Pemphigoid
  2. PREDNISOLONE [Suspect]
     Active Substance: PREDNISOLONE
     Indication: Pemphigoid

REACTIONS (6)
  - Product use in unapproved indication [Unknown]
  - Drug effective for unapproved indication [Unknown]
  - Off label use [Unknown]
  - Pneumonia aspiration [Fatal]
  - Oesophageal carcinoma [Unknown]
  - Malignant neoplasm progression [Unknown]
